FAERS Safety Report 7757895-3 (Version None)
Quarter: 2011Q3

REPORT INFORMATION
  Report Type: 
  Country: None (occurrence: None)
  Receive Date: 20110918
  Receipt Date: 20110608
  Transmission Date: 20111222
  Serious: Yes (Other)
  Sender: FDA-Public Use
  Company Number: PHHY2011BR51675

PATIENT
  Sex: Female
  Weight: 84 kg

DRUGS (2)
  1. FORMOTEROL FUMARATE [Suspect]
     Dosage: 12/400 MCG
     Dates: start: 20110101
  2. FORMOTEROL FUMARATE [Suspect]
     Indication: ASTHMA
     Dosage: 12/200MCG
     Dates: start: 20060101, end: 20060101

REACTIONS (2)
  - EXPIRED DRUG ADMINISTERED [None]
  - ASTHMA [None]
